FAERS Safety Report 10560506 (Version 1)
Quarter: 2014Q4

REPORT INFORMATION
  Report Type: Spontaneous
  Country: US (occurrence: US)
  Receive Date: 20141103
  Receipt Date: 20141103
  Transmission Date: 20150529
  Serious: No
  Sender: FDA-Public Use
  Company Number: US-SA-2014SA018915

PATIENT
  Sex: Female

DRUGS (1)
  1. LUMIZYME [Suspect]
     Active Substance: ALGLUCOSIDASE ALFA
     Indication: GLYCOGEN STORAGE DISEASE TYPE II
     Route: 042

REACTIONS (16)
  - Dyspnoea [Unknown]
  - Hypersensitivity [Unknown]
  - Abdominal discomfort [Unknown]
  - Epistaxis [Unknown]
  - Rash [Unknown]
  - Headache [Unknown]
  - Throat tightness [Unknown]
  - Pyrexia [Unknown]
  - Renal disorder [Unknown]
  - Swelling face [Unknown]
  - Musculoskeletal pain [Unknown]
  - Dyspepsia [Unknown]
  - Skin ulcer [Unknown]
  - Eructation [Unknown]
  - Chest discomfort [Unknown]
  - Hot flush [Unknown]
